FAERS Safety Report 5636891-6 (Version None)
Quarter: 2008Q1

REPORT INFORMATION
  Report Type: 
  Country: None (occurrence: None)
  Receive Date: 20080225
  Receipt Date: 20080215
  Transmission Date: 20080703
  Serious: Yes (Hospitalization)
  Sender: FDA-Public Use
  Company Number: US-PURDUE-USA_2008_0031656

PATIENT
  Sex: Male

DRUGS (4)
  1. OXYCONTIN [Suspect]
     Indication: PAIN
     Dates: start: 20060712
  2. VICODIN [Suspect]
     Indication: PAIN
     Dates: start: 20060712
  3. PREDNISONE TAB [Concomitant]
  4. NAPROSYN [Concomitant]

REACTIONS (4)
  - DYSARTHRIA [None]
  - IMPAIRED DRIVING ABILITY [None]
  - MENINGITIS [None]
  - ROAD TRAFFIC ACCIDENT [None]
